FAERS Safety Report 4721653-4 (Version None)
Quarter: 2005Q3

REPORT INFORMATION
  Report Type: 
  Country: None (occurrence: None)
  Receive Date: 20050721
  Receipt Date: 20050203
  Transmission Date: 20060218
  Serious: No
  Sender: FDA-Public Use
  Company Number: US-BRISTOL-MYERS SQUIBB COMPANY-12848016

PATIENT
  Age: 75 Year
  Sex: Male
  Weight: 91 kg

DRUGS (3)
  1. COUMADIN [Suspect]
     Indication: CEREBROVASCULAR ACCIDENT
     Dosage: 4 MG TABLETS REPLACED BY 2 MG TABLETS (2 DAILY)
     Route: 048
     Dates: start: 20041201
  2. BEXTRA [Concomitant]
  3. DIURETIC [Concomitant]

REACTIONS (1)
  - VASCULITIS [None]
